FAERS Safety Report 6837642-X (Version None)
Quarter: 2010Q3

REPORT INFORMATION
  Report Type: 
  Country: None (occurrence: None)
  Receive Date: 20100713
  Receipt Date: 20070518
  Transmission Date: 20110219
  Serious: No
  Sender: FDA-Public Use
  Company Number: US-PFIZER INC-2007040537

PATIENT
  Sex: Female
  Weight: 70.9 kg

DRUGS (9)
  1. CHANTIX [Suspect]
     Indication: SMOKING CESSATION THERAPY
     Dates: start: 20070510
  2. CLONAZEPAM [Concomitant]
  3. TRAZODONE HYDROCHLORIDE [Concomitant]
  4. OXYBUTYNIN CHLORIDE [Concomitant]
  5. ALL OTHER THERAPEUTIC PRODUCTS [Concomitant]
  6. OMEPRAZOLE [Concomitant]
  7. NAPROSYN [Concomitant]
  8. MS CONTIN [Concomitant]
  9. PERCOCET [Concomitant]

REACTIONS (3)
  - NAUSEA [None]
  - SOMNOLENCE [None]
  - VOMITING [None]
